FAERS Safety Report 11864473 (Version 1)
Quarter: 2015Q4

REPORT INFORMATION
  Report Type: Spontaneous
  Country: US (occurrence: US)
  Receive Date: 20151223
  Receipt Date: 20151223
  Transmission Date: 20160305
  Serious: No
  Sender: FDA-Public Use
  Company Number: US-TEVA-600551USA

PATIENT
  Sex: Female
  Weight: 57.2 kg

DRUGS (1)
  1. DISULFIRAM. [Suspect]
     Active Substance: DISULFIRAM
     Route: 065

REACTIONS (1)
  - Urine alcohol test positive [Unknown]
